FAERS Safety Report 4787873-8 (Version None)
Quarter: 2005Q4

REPORT INFORMATION
  Report Type: 
  Country: None (occurrence: None)
  Receive Date: 20051004
  Receipt Date: 20050902
  Transmission Date: 20060501
  Serious: Yes (Other)
  Sender: FDA-Public Use
  Company Number: BE-MERCK-0509BEL00001

PATIENT
  Age: 58 Year
  Sex: Female
  Weight: 68 kg

DRUGS (3)
  1. ZETIA [Suspect]
     Indication: HYPERCHOLESTEROLAEMIA
     Route: 048
     Dates: start: 20040923, end: 20041201
  2. IRBESARTAN [Concomitant]
     Route: 048
  3. ESTRIOL [Concomitant]
     Route: 048

REACTIONS (1)
  - HEPATIC ENZYME ABNORMAL [None]
